FAERS Safety Report 4835400-9 (Version None)
Quarter: 2005Q4

REPORT INFORMATION
  Report Type: 
  Country: None (occurrence: None)
  Receive Date: 20051118
  Receipt Date: 20051103
  Transmission Date: 20060501
  Serious: Yes (Hospitalization, Other)
  Sender: FDA-Public Use
  Company Number: 2005-0008560

PATIENT
  Age: 43 Year
  Sex: Male
  Weight: 64.9 kg

DRUGS (6)
  1. TRUVADA [Suspect]
     Indication: HIV INFECTION
     Dosage: 300MG, 1 IN 1 D
     Dates: start: 20050626, end: 20050701
  2. AMBISOME [Suspect]
     Indication: MENINGITIS CRYPTOCOCCAL
     Dates: start: 20051011, end: 20051024
  3. ATAZANAVIR (ATAZANAVIR) [Concomitant]
  4. RITONAVIR (RITONAVIR) [Concomitant]
  5. EFAVIRENZ (EFAVIRENZ) [Concomitant]
  6. AMPHOTERICIN B [Suspect]
     Indication: MENINGITIS CRYPTOCOCCAL
     Dates: start: 20050520, end: 20050607

REACTIONS (5)
  - IMMUNE RECONSTITUTION SYNDROME [None]
  - INTRACRANIAL PRESSURE INCREASED [None]
  - MENINGITIS CRYPTOCOCCAL [None]
  - RENAL FAILURE ACUTE [None]
  - SELF-MEDICATION [None]
